FAERS Safety Report 8508071-8 (Version None)
Quarter: 2012Q2

REPORT INFORMATION
  Report Type: 
  Country: None (occurrence: None)
  Receive Date: 20120405
  Receipt Date: 20091022
  Transmission Date: 20120825
  Serious: Yes (Disabling, Other)
  Sender: FDA-Public Use
  Company Number: PHEH2009US10228

PATIENT
  Age: 59 Year
  Sex: Female
  Weight: 67.1 kg

DRUGS (4)
  1. CELEBREX [Concomitant]
  2. RECLAST [Suspect]
     Indication: OSTEOPOROSIS
     Dosage: 5 MG IV ANNUALLY, INTRAVENOUS
     Route: 042
     Dates: start: 20090821
  3. AMBIEN (ZOLEPIDEM TARTRATE) [Concomitant]
  4. OMACOR /01403701/ (OMEGA-3 MARINE TRIGLYCERIDES) [Concomitant]

REACTIONS (5)
  - PAIN [None]
  - BONE PAIN [None]
  - OEDEMA PERIPHERAL [None]
  - ARTHRALGIA [None]
  - NAUSEA [None]
